FAERS Safety Report 15603370 (Version 2)
Quarter: 2018Q4

REPORT INFORMATION
  Report Type: Report from Study
  Country: CA (occurrence: CA)
  Receive Date: 20181109
  Receipt Date: 20181116
  Transmission Date: 20190205
  Serious: Yes (Hospitalization, Other)
  Sender: FDA-Public Use
  Company Number: CA-MYLANLABS-2018M1085114

PATIENT
  Age: 58 Year
  Sex: Male

DRUGS (3)
  1. CLOZAPINE. [Suspect]
     Active Substance: CLOZAPINE
     Indication: PRODUCT USED FOR UNKNOWN INDICATION
     Dosage: UNK
     Dates: start: 201810
  2. CLOZAPINE. [Suspect]
     Active Substance: CLOZAPINE
     Dosage: 125 MG, UNK (DOSE WAS UPPED TO ABOUT 125 MG)
     Dates: start: 2018
  3. CLOZAPINE. [Suspect]
     Active Substance: CLOZAPINE
     Dosage: 50 MG, UNK
     Dates: start: 2018, end: 20181104

REACTIONS (11)
  - Pneumonia [Unknown]
  - C-reactive protein increased [Not Recovered/Not Resolved]
  - Chest pain [Unknown]
  - Cough [Unknown]
  - Psychotic disorder [Unknown]
  - Electrocardiogram QT prolonged [Unknown]
  - Sinus tachycardia [Unknown]
  - Troponin increased [Recovered/Resolved]
  - Dyspnoea [Unknown]
  - Myocarditis [Unknown]
  - Asthenia [Unknown]

NARRATIVE: CASE EVENT DATE: 2018
